FAERS Safety Report 4874813-6 (Version None)
Quarter: 2006Q1

REPORT INFORMATION
  Report Type: 
  Country: None (occurrence: None)
  Receive Date: 20060104
  Receipt Date: 20051221
  Transmission Date: 20060701
  Serious: Yes (Other)
  Sender: FDA-Public Use
  Company Number: 2005168545

PATIENT

DRUGS (3)
  1. LINEZOLID SOLUTION, STERILE (LINEZOLID) [Suspect]
     Indication: ILL-DEFINED DISORDER
  2. RIFAMPICIN [Suspect]
     Indication: ILL-DEFINED DISORDER
  3. CIPROFLOXACIN [Suspect]
     Indication: ILL-DEFINED DISORDER

REACTIONS (1)
  - HAEMOLYSIS [None]
